FAERS Safety Report 23816035 (Version 1)
Quarter: 2024Q2

REPORT INFORMATION
  Report Type: Spontaneous
  Country: US (occurrence: None)
  Receive Date: 20240502
  Receipt Date: 20240502
  Transmission Date: 20240716
  Serious: Yes (Hospitalization)
  Sender: FDA-Public Use
  Company Number: None

PATIENT
  Age: 15 Year
  Sex: Female
  Weight: 87 kg

DRUGS (1)
  1. ISOTRETINOIN [Suspect]
     Active Substance: ISOTRETINOIN
     Indication: Acne
     Dosage: FREQUENCY : TWICE A DAY;?
     Route: 048
     Dates: start: 20230901, end: 20231215

REACTIONS (3)
  - Suicidal ideation [None]
  - Therapy cessation [None]
  - Depression [None]

NARRATIVE: CASE EVENT DATE: 20231110
